FAERS Safety Report 13281968 (Version 1)
Quarter: 2017Q1

REPORT INFORMATION
  Report Type: Spontaneous
  Country: US (occurrence: US)
  Receive Date: 20170301
  Receipt Date: 20170301
  Transmission Date: 20170428
  Serious: Yes (Hospitalization)
  Sender: FDA-Public Use
  Company Number: None

PATIENT

DRUGS (2)
  1. MEROPENEM. [Suspect]
     Active Substance: MEROPENEM
  2. OMEPRAZOLE 20 MG [Suspect]
     Active Substance: OMEPRAZOLE

REACTIONS (2)
  - Clostridium difficile infection [None]
  - Hypernatraemia [None]

NARRATIVE: CASE EVENT DATE: 20150527
